FAERS Safety Report 15809738 (Version 1)
Quarter: 2019Q1

REPORT INFORMATION
  Report Type: Spontaneous
  Country: US (occurrence: US)
  Receive Date: 20190111
  Receipt Date: 20190111
  Transmission Date: 20190417
  Serious: Yes (Hospitalization, Other)
  Sender: FDA-Public Use
  Company Number: US-ROCHE-2062101

PATIENT
  Age: 57 Year
  Sex: Female
  Weight: 114 kg

DRUGS (1)
  1. RITUXAN [Suspect]
     Active Substance: RITUXIMAB
     Indication: LYMPHOPROLIFERATIVE DISORDER
     Dosage: ONGOING: NO
     Route: 042
     Dates: start: 20180103, end: 20180117

REACTIONS (2)
  - Rash [Unknown]
  - Rash [Unknown]

NARRATIVE: CASE EVENT DATE: 20180119
